FAERS Safety Report 9447563 (Version 2)
Quarter: 2013Q3

REPORT INFORMATION
  Report Type: Spontaneous
  Country: US (occurrence: US)
  Receive Date: 20130808
  Receipt Date: 20130905
  Transmission Date: 20140515
  Serious: Yes (Hospitalization)
  Sender: FDA-Public Use
  Company Number: US-ROCHE-1258408

PATIENT
  Age: 35 Year
  Sex: Female

DRUGS (2)
  1. KADCYLA [Suspect]
     Indication: METASTATIC NEOPLASM
     Route: 065
  2. HERCEPTIN [Suspect]
     Indication: PRODUCT USED FOR UNKNOWN INDICATION
     Route: 065

REACTIONS (6)
  - Pneumonia [Unknown]
  - Drug hypersensitivity [Unknown]
  - Chills [Unknown]
  - Pyrexia [Unknown]
  - Chills [Unknown]
  - Urticaria [Unknown]
